FAERS Safety Report 5728435-5 (Version None)
Quarter: 2008Q2

REPORT INFORMATION
  Report Type: 
  Country: None (occurrence: None)
  Receive Date: 20080430
  Receipt Date: 20071004
  Transmission Date: 20081010
  Serious: Yes (Other)
  Sender: FDA-Public Use
  Company Number: E3810-01290-SPO-AU

PATIENT
  Age: 83 Year
  Sex: Female

DRUGS (7)
  1. RABEPRAZOLE SODIUM [Suspect]
     Dosage: 20 MG, ORAL
     Route: 048
     Dates: start: 20070515, end: 20070601
  2. CARDIZEM [Concomitant]
  3. EVISTA [Concomitant]
  4. DUCENE (DIAZEPAM) [Concomitant]
  5. CARDIPRIN (ACETYLSALICYLIC ACID) [Concomitant]
  6. PROCHLORPERAZINE [Concomitant]
  7. PANAMAX (PARACETAMOL) [Concomitant]

REACTIONS (3)
  - BALANCE DISORDER [None]
  - DYSARTHRIA [None]
  - TREMOR [None]
